FAERS Safety Report 10094134 (Version 1)
Quarter: 2014Q2

REPORT INFORMATION
  Report Type: Spontaneous
  Country: CA (occurrence: CA)
  Receive Date: 20140422
  Receipt Date: 20140422
  Transmission Date: 20141212
  Serious: Yes (Other)
  Sender: FDA-Public Use
  Company Number: CA-BRISTOL-MYERS SQUIBB COMPANY-20633905

PATIENT
  Age: 53 Year
  Sex: Male

DRUGS (1)
  1. COUMADIN [Suspect]
     Indication: FACTOR V LEIDEN MUTATION
     Dosage: INJ

REACTIONS (2)
  - Phlebitis [Unknown]
  - Embolism [Unknown]
